FAERS Safety Report 7824324-0 (Version None)
Quarter: 2011Q4

REPORT INFORMATION
  Report Type: 
  Country: None (occurrence: None)
  Receive Date: 20111014
  Receipt Date: 20111007
  Transmission Date: 20120403
  Serious: Yes (Other)
  Sender: FDA-Public Use
  Company Number: 2011MA013680

PATIENT
  Age: 52 Year
  Sex: Female

DRUGS (4)
  1. ACETAMINOPHEN AND CODEINE PHOSPHATE [Concomitant]
  2. ACETAMINOPHEN AND CODEINE PHOSPHATE [Suspect]
     Indication: MIGRAINE
     Dosage: PO
     Route: 048
  3. ALCOHOL (ETHANOL) [Suspect]
  4. FEVERALL [Suspect]
     Indication: MIGRAINE

REACTIONS (3)
  - AMNESIA [None]
  - AGGRESSION [None]
  - SOMNOLENCE [None]
